FAERS Safety Report 5401604-X (Version None)
Quarter: 2007Q3

REPORT INFORMATION
  Report Type: 
  Country: None (occurrence: None)
  Receive Date: 20070731
  Receipt Date: 20070720
  Transmission Date: 20080115
  Serious: Yes (Hospitalization)
  Sender: FDA-Public Use
  Company Number: HQWYE154720JUL07

PATIENT
  Age: 86 Year
  Sex: Male

DRUGS (1)
  1. HYPEN [Suspect]
     Dosage: UNKNOWN
     Route: 048

REACTIONS (1)
  - LIVER DISORDER [None]
